FAERS Safety Report 11777500 (Version 2)
Quarter: 2015Q4

REPORT INFORMATION
  Report Type: Spontaneous
  Country: US (occurrence: US)
  Receive Date: 20151125
  Receipt Date: 20151222
  Transmission Date: 20160304
  Serious: Yes (Death)
  Sender: FDA-Public Use
  Company Number: US-009507513-1511USA013436

PATIENT
  Age: 77 Year
  Sex: Male

DRUGS (1)
  1. NOXAFIL [Suspect]
     Active Substance: POSACONAZOLE
     Dosage: 3 DF, DAILY
     Route: 048
     Dates: start: 201406

REACTIONS (1)
  - Death [Fatal]

NARRATIVE: CASE EVENT DATE: 20150303
